FAERS Safety Report 17327503 (Version 1)
Quarter: 2020Q1

REPORT INFORMATION
  Report Type: Spontaneous
  Country: IN (occurrence: IN)
  Receive Date: 20200127
  Receipt Date: 20200127
  Transmission Date: 20200409
  Serious: Yes (Death)
  Sender: FDA-Public Use
  Company Number: IN-SHIRE-IN202002903

PATIENT

DRUGS (1)
  1. ALBUMIN HUMAN USP [Suspect]
     Active Substance: ALBUMIN HUMAN
     Indication: PRODUCT USED FOR UNKNOWN INDICATION
     Dosage: 10 MILLILITER
     Route: 065
     Dates: start: 20200113

REACTIONS (2)
  - Infusion related reaction [Unknown]
  - Hypersensitivity [Fatal]

NARRATIVE: CASE EVENT DATE: 20200113
